FAERS Safety Report 8768157 (Version 1)
Quarter: 2012Q4

REPORT INFORMATION
  Report Type: 
  Country: CA (occurrence: CA)
  Receive Date: 20120830
  Receipt Date: 20120830
  Transmission Date: 20130627
  Serious: Yes (Death, Hospitalization, Other)
  Sender: FDA-Public Use
  Company Number: CA-ELI_LILLY_AND_COMPANY-CA201208008033

PATIENT
  Age: 69 Year
  Sex: Female

DRUGS (31)
  1. FORTEO [Suspect]
     Indication: OSTEOPOROSIS
     Dosage: 20 ug, qd
     Route: 058
     Dates: start: 20101125, end: 20120803
  2. SPIRONOLACTONE [Concomitant]
  3. FERROUS FUMERATE [Concomitant]
  4. LOSEC [Concomitant]
  5. CALCIUM CARBONATE [Concomitant]
  6. VITAMIN D [Concomitant]
  7. SLOW K [Concomitant]
  8. VITAMIN B12 [Concomitant]
  9. LEFLUNOMIDE [Concomitant]
  10. METHOTREXATE [Concomitant]
  11. Z-BEC [Concomitant]
  12. NYSTATIN [Concomitant]
  13. COLCHICINE [Concomitant]
  14. PREDNISONE [Concomitant]
  15. GABAPENTIN [Concomitant]
  16. TYLENOL /00020001/ [Concomitant]
  17. FUROSEMIDE [Concomitant]
  18. DILAUDID [Concomitant]
  19. HYDROMORPH CONTIN [Concomitant]
  20. NORTRIPTYLINE [Concomitant]
  21. VENLAFAXINE [Concomitant]
  22. FOLIC ACID [Concomitant]
  23. METFORMIN [Concomitant]
  24. VENTOLIN                           /00139501/ [Concomitant]
  25. ADVAIR [Concomitant]
  26. SPIRIVA [Concomitant]
  27. COUMADIN [Concomitant]
  28. METAMUCIL [Concomitant]
     Dosage: UNK, prn
  29. CRANBERRY [Concomitant]
     Dosage: UNK, prn
  30. ACIDOPHILUS [Concomitant]
     Dosage: UNK, prn
  31. HYDROXYCHLOROQUINE SULFATE [Concomitant]

REACTIONS (7)
  - Death [Fatal]
  - Septic shock [Unknown]
  - Organ failure [Unknown]
  - Myocardial infarction [Unknown]
  - Cerebrovascular accident [Unknown]
  - General physical health deterioration [Unknown]
  - Hospitalisation [Unknown]
